FAERS Safety Report 18478770 (Version 1)
Quarter: 2020Q4

REPORT INFORMATION
  Report Type: Spontaneous
  Country: GB (occurrence: GB)
  Receive Date: 20201109
  Receipt Date: 20201109
  Transmission Date: 20210114
  Serious: Yes (Hospitalization)
  Sender: FDA-Public Use
  Company Number: GB-TEVA-2020-GB-1845328

PATIENT
  Age: 87 Year
  Sex: Male
  Weight: 100 kg

DRUGS (12)
  1. ALLOPURINOL. [Concomitant]
     Active Substance: ALLOPURINOL
     Dosage: 1 DF
     Dates: start: 20200602
  2. FOSFOMYCIN [Concomitant]
     Active Substance: FOSFOMYCIN
     Indication: URINARY TRACT INFECTION
     Dosage: (3RD LINE): TAKE ONE SACHET DISS.
     Dates: start: 20200910, end: 20200913
  3. FERROUS FUMARATE [Concomitant]
     Active Substance: FERROUS FUMARATE
     Dosage: 2 DF
     Dates: start: 20200602
  4. CALCIUM CARBONATE. [Concomitant]
     Active Substance: CALCIUM CARBONATE
     Dosage: 4 DOSAGE FORMS DAILY; AT LUNCH TIME AND IN THE EVENING
     Dates: start: 20200602
  5. DOCUSATE SODIUM. [Concomitant]
     Active Substance: DOCUSATE SODIUM
     Indication: CONSTIPATION
     Dosage: 4 DF
     Dates: start: 20200811
  6. NITROFURANTOIN. [Suspect]
     Active Substance: NITROFURANTOIN
     Dosage: 50 MG
     Route: 048
     Dates: start: 20200929
  7. PARACETAMOL [Concomitant]
     Active Substance: ACETAMINOPHEN
     Dosage: ONE OR TWO TO BE TAKEN UPTO FOUR TIMES DAILY FO.
     Dates: start: 20200810
  8. MACROGOL [Concomitant]
     Active Substance: POLYETHYLENE GLYCOLS
     Dosage: 1 DF ONE SACHET TO BE DISSOLVED IN A GLASS OF WATER.
     Dates: start: 20200602
  9. FLUDROCORTISONE [Concomitant]
     Active Substance: FLUDROCORTISONE
     Dosage: 1 DF
     Dates: start: 20200602
  10. FOLIC ACID. [Concomitant]
     Active Substance: FOLIC ACID
     Dosage: 1 DOSAGE FORMS DAILY; AT 8AM
     Dates: start: 20200828
  11. DUTASTERIDE. [Concomitant]
     Active Substance: DUTASTERIDE
     Dosage: 1 DF
     Dates: start: 20200602
  12. CASSIA [Concomitant]
     Dosage: 30 MILLIGRAM DAILY; AT NIGHT - STOP IF LOOSE STOOL
     Dates: start: 20200811

REACTIONS (3)
  - Chills [Recovered/Resolved with Sequelae]
  - Hypoaesthesia [Unknown]
  - Feeling of body temperature change [Unknown]

NARRATIVE: CASE EVENT DATE: 20201009
